FAERS Safety Report 9839093 (Version 1)
Quarter: 2014Q1

REPORT INFORMATION
  Report Type: Spontaneous
  Country: GR (occurrence: GR)
  Receive Date: 20140123
  Receipt Date: 20140123
  Transmission Date: 20141002
  Serious: Yes (Other)
  Sender: FDA-Public Use
  Company Number: PHHY2013GR149627

PATIENT
  Age: 59 Year
  Sex: Female

DRUGS (2)
  1. FEMARA [Suspect]
     Indication: BREAST CANCER
     Dosage: UNK UKN, UNK
  2. THYROXINE [Concomitant]
     Dosage: UNK UKN, UNK
     Dates: start: 201309

REACTIONS (1)
  - Syncope [Unknown]
